FAERS Safety Report 8324391-4 (Version None)
Quarter: 2012Q2

REPORT INFORMATION
  Report Type: 
  Country: None (occurrence: None)
  Receive Date: 20120430
  Receipt Date: 20120430
  Transmission Date: 20120825
  Serious: No
  Sender: FDA-Public Use
  Company Number: None

PATIENT
  Sex: Female

DRUGS (1)
  1. AVONEX [Suspect]
     Indication: MULTIPLE SCLEROSIS
     Dosage: 30 MCG ONCE WEEKLY INTRAMUSCULARLY
     Route: 030
     Dates: start: 20120316, end: 20120424

REACTIONS (5)
  - VOMITING [None]
  - MALAISE [None]
  - DIARRHOEA [None]
  - HEADACHE [None]
  - PRODUCT QUALITY ISSUE [None]
